FAERS Safety Report 23332055 (Version 2)
Quarter: 2024Q1

REPORT INFORMATION
  Report Type: Report from Study
  Country: US (occurrence: US)
  Receive Date: 20231222
  Receipt Date: 20240102
  Transmission Date: 20240409
  Serious: Yes (Death, Hospitalization, Other)
  Sender: FDA-Public Use
  Company Number: US-PFIZER INC-PV202300184400

PATIENT
  Age: 87 Year
  Sex: Male
  Weight: 43.991 kg

DRUGS (1)
  1. VYNDAMAX [Suspect]
     Active Substance: TAFAMIDIS
     Indication: Cardiac amyloidosis
     Dosage: 61 MG, 1X/DAY
     Route: 048
     Dates: start: 20230330

REACTIONS (3)
  - Death [Fatal]
  - Pneumonia [Unknown]
  - Gastrostomy [Unknown]

NARRATIVE: CASE EVENT DATE: 20231120
